FAERS Safety Report 7229521-3 (Version None)
Quarter: 2011Q1

REPORT INFORMATION
  Report Type: 
  Country: None (occurrence: None)
  Receive Date: 20110117
  Receipt Date: 20100414
  Transmission Date: 20110831
  Serious: No
  Sender: FDA-Public Use
  Company Number: US-TYCO HEALTHCARE/MALLINCKRODT-T201001041

PATIENT

DRUGS (8)
  1. PREDNISONE [Concomitant]
     Indication: PREMEDICATION
     Dosage: 50 MG, 13 HOURS BEFORE SCAN
     Route: 048
     Dates: start: 20100413, end: 20100413
  2. PREDNISONE [Concomitant]
     Dosage: 50 MG, 1 HOUR BEFORE SCAN
     Route: 048
     Dates: start: 20100413, end: 20100413
  3. ATENOLOL [Concomitant]
  4. PREDNISONE [Concomitant]
     Dosage: 50 MG, 7 HOURS BEFORE SCAN
     Route: 048
     Dates: start: 20100413, end: 20100413
  5. PREVACID [Concomitant]
  6. CRESTOR [Concomitant]
  7. OPTIRAY 350 [Suspect]
     Indication: COMPUTERISED TOMOGRAM
     Dosage: 100 ML, SINGLE
     Route: 042
     Dates: start: 20100413, end: 20100413
  8. BENADRYL [Concomitant]
     Indication: PREMEDICATION
     Dosage: 50 MG, 1 HOUR BEFORE SCAN
     Route: 048
     Dates: start: 20100413, end: 20100413

REACTIONS (3)
  - FLUSHING [None]
  - RASH [None]
  - SWELLING FACE [None]
